FAERS Safety Report 11057808 (Version 1)
Quarter: 2015Q2

REPORT INFORMATION
  Report Type: Report from Study
  Country: CL (occurrence: CL)
  Receive Date: 20150423
  Receipt Date: 20150423
  Transmission Date: 20150821
  Serious: Yes (Hospitalization, Other)
  Sender: FDA-Public Use
  Company Number: CL-ROCHE-1451996

PATIENT
  Age: 55 Year
  Sex: Male
  Weight: 72 kg

DRUGS (3)
  1. MABTHERA [Suspect]
     Active Substance: RITUXIMAB
     Route: 042
     Dates: start: 201503
  2. VALSARTAN. [Concomitant]
     Active Substance: VALSARTAN
     Indication: HYPERTENSION
     Route: 048
     Dates: start: 2008
  3. MABTHERA [Suspect]
     Active Substance: RITUXIMAB
     Indication: NON-HODGKIN^S LYMPHOMA
     Route: 042
     Dates: start: 20140624

REACTIONS (13)
  - Bacterial infection [Recovered/Resolved]
  - Platelet count abnormal [Recovered/Resolved]
  - Burning sensation [Recovering/Resolving]
  - Septic shock [Recovered/Resolved]
  - Rash erythematous [Recovered/Resolved]
  - Pruritus [Recovering/Resolving]
  - White blood cell count abnormal [Recovered/Resolved]
  - Diarrhoea [Recovered/Resolved]
  - Pyrexia [Not Recovered/Not Resolved]
  - Platelet count decreased [Recovered/Resolved]
  - Depressed mood [Not Recovered/Not Resolved]
  - Erythema [Recovering/Resolving]
  - Immune system disorder [Recovered/Resolved]

NARRATIVE: CASE EVENT DATE: 201407
